FAERS Safety Report 7139540-3 (Version None)
Quarter: 2010Q4

REPORT INFORMATION
  Report Type: 
  Country: None (occurrence: None)
  Receive Date: 20101206
  Receipt Date: 20101124
  Transmission Date: 20110411
  Serious: Yes (Other)
  Sender: FDA-Public Use
  Company Number: US-RB-018739-10

PATIENT
  Age: 54 Year
  Sex: Male

DRUGS (1)
  1. SUBOXONE [Suspect]
     Indication: PRODUCT USED FOR UNKNOWN INDICATION
     Dosage: DOSAGE INFORMATION UNKNOWN / SUBLINGUAL FILM
     Route: 065
     Dates: start: 20100101

REACTIONS (7)
  - ANXIETY [None]
  - DEPRESSION [None]
  - INTENTIONAL DRUG MISUSE [None]
  - NERVOUSNESS [None]
  - POOR QUALITY SLEEP [None]
  - STRESS [None]
  - SUICIDAL IDEATION [None]
